FAERS Safety Report 13695393 (Version 1)
Quarter: 2017Q2

REPORT INFORMATION
  Report Type: Spontaneous
  Country: US (occurrence: US)
  Receive Date: 20170627
  Receipt Date: 20170627
  Transmission Date: 20170830
  Serious: No
  Sender: FDA-Public Use
  Company Number: US-ALLERGAN-1715331US

PATIENT

DRUGS (1)
  1. CRINONE [Suspect]
     Active Substance: PROGESTERONE
     Indication: SUPPLEMENTATION THERAPY
     Route: 062

REACTIONS (5)
  - Off label use [Unknown]
  - Medication residue present [Unknown]
  - Endometrial disorder [Unknown]
  - Metrorrhagia [Unknown]
  - Drug ineffective [Unknown]
